FAERS Safety Report 16179913 (Version 1)
Quarter: 2019Q2

REPORT INFORMATION
  Report Type: Spontaneous
  Country: US (occurrence: US)
  Receive Date: 20190410
  Receipt Date: 20190410
  Transmission Date: 20190711
  Serious: No
  Sender: FDA-Public Use
  Company Number: US-009507513-1903USA005286

PATIENT
  Age: 72 Year
  Sex: Female

DRUGS (2)
  1. SINEMET [Suspect]
     Active Substance: CARBIDOPA\LEVODOPA
     Indication: PARKINSON^S DISEASE
     Dosage: UP TO 5 (TABLETS) PER DAY
     Route: 048
     Dates: start: 2017, end: 2017
  2. SINEMET [Suspect]
     Active Substance: CARBIDOPA\LEVODOPA
     Dosage: UP TO 5 (TABLETS) PER DAY
     Route: 048
     Dates: start: 2010

REACTIONS (1)
  - Bladder discomfort [Recovered/Resolved]

NARRATIVE: CASE EVENT DATE: 2017
